FAERS Safety Report 8542497-1 (Version None)
Quarter: 2012Q3

REPORT INFORMATION
  Report Type: 
  Country: None (occurrence: None)
  Receive Date: 20120726
  Receipt Date: 20111025
  Transmission Date: 20120928
  Serious: Yes (Other)
  Sender: FDA-Public Use
  Company Number: US-ASTRAZENECA-2011SE16229

PATIENT
  Age: 49 Year
  Sex: Female
  Weight: 133.4 kg

DRUGS (7)
  1. LIPITOR [Concomitant]
     Indication: BLOOD CHOLESTEROL ABNORMAL
  2. LASIX [Concomitant]
     Indication: HYPERTENSION
  3. SEROQUEL [Suspect]
     Indication: BIPOLAR DISORDER
     Route: 048
  4. WELLBUTRIN SR [Concomitant]
     Indication: DEPRESSION
  5. KLONOPIN [Concomitant]
     Indication: ANXIETY
  6. DIOVAN HCT [Concomitant]
     Indication: HYPERTENSION
     Dosage: 160/25
  7. LAMICTAL [Concomitant]
     Indication: BIPOLAR DISORDER

REACTIONS (1)
  - DIABETES MELLITUS [None]
